FAERS Safety Report 7215209-1 (Version None)
Quarter: 2011Q1

REPORT INFORMATION
  Report Type: 
  Country: None (occurrence: None)
  Receive Date: 20110107
  Receipt Date: 20101028
  Transmission Date: 20110831
  Serious: No
  Sender: FDA-Public Use
  Company Number: A0889400A

PATIENT
  Age: 49 Year
  Sex: Female

DRUGS (4)
  1. SYNTHROID [Concomitant]
  2. GLUCOSE [Concomitant]
  3. LOVAZA [Suspect]
     Dosage: 4G PER DAY
     Route: 048
     Dates: start: 20101019, end: 20101021
  4. ZITHROMAX [Concomitant]

REACTIONS (6)
  - OROPHARYNGEAL PAIN [None]
  - RHINORRHOEA [None]
  - INFLUENZA [None]
  - NASAL DISCOMFORT [None]
  - THERAPEUTIC RESPONSE UNEXPECTED [None]
  - UPPER RESPIRATORY TRACT INFECTION [None]
